FAERS Safety Report 9726450 (Version 2)
Quarter: 2013Q4

REPORT INFORMATION
  Report Type: Spontaneous
  Country: NL (occurrence: NL)
  Receive Date: 20131203
  Receipt Date: 20131209
  Transmission Date: 20140711
  Serious: Yes (Disabling)
  Sender: FDA-Public Use
  Company Number: NL-TEVA-446112ISR

PATIENT
  Sex: Female

DRUGS (9)
  1. RISEDRONIC ACID [Suspect]
     Route: 065
  2. CALCIUM CARBONATE [Concomitant]
     Route: 065
  3. INSULIN [Concomitant]
     Route: 065
  4. ROSUVASTATIN [Concomitant]
     Route: 065
  5. FUROSEMIDE [Concomitant]
     Route: 065
  6. FOLIC ACID [Concomitant]
     Route: 065
  7. ASPIRIN [Concomitant]
     Route: 065
  8. LEVOMENTHOL/COAL TAR [Concomitant]
     Route: 050
  9. PARACETAMOL/CODEINE [Concomitant]
     Route: 065

REACTIONS (1)
  - Vision blurred [Not Recovered/Not Resolved]
